FAERS Safety Report 8456016-1 (Version None)
Quarter: 2012Q2

REPORT INFORMATION
  Report Type: 
  Country: None (occurrence: None)
  Receive Date: 20120621
  Receipt Date: 20120614
  Transmission Date: 20120825
  Serious: Yes (Other)
  Sender: FDA-Public Use
  Company Number: PHHY2012CH052857

PATIENT
  Sex: Male

DRUGS (2)
  1. ILARIS [Suspect]
     Indication: GOUTY ARTHRITIS
  2. PREDNISONE TAB [Concomitant]

REACTIONS (1)
  - RENAL FAILURE [None]
